FAERS Safety Report 5793128-5 (Version None)
Quarter: 2008Q2

REPORT INFORMATION
  Report Type: 
  Country: None (occurrence: None)
  Receive Date: 20080627
  Receipt Date: 20080324
  Transmission Date: 20081010
  Serious: No
  Sender: FDA-Public Use
  Company Number: A0716892A

PATIENT
  Age: 73 Year
  Sex: Female

DRUGS (6)
  1. FLOVENT [Suspect]
     Dosage: 2PUFF TWICE PER DAY
     Route: 055
     Dates: start: 19980101
  2. SEREVENT [Concomitant]
  3. NEBULIZER [Concomitant]
  4. NEXIUM [Concomitant]
  5. DIOVAN [Concomitant]
  6. PLENDIL [Concomitant]

REACTIONS (3)
  - DYSPHONIA [None]
  - GASTROOESOPHAGEAL REFLUX DISEASE [None]
  - THERAPEUTIC RESPONSE UNEXPECTED [None]
